FAERS Safety Report 8989223 (Version 2)
Quarter: 2013Q1

REPORT INFORMATION
  Report Type: Spontaneous
  Country: US (occurrence: US)
  Receive Date: 20121227
  Receipt Date: 20130114
  Transmission Date: 20140127
  Serious: Yes (Other)
  Sender: FDA-Public Use
  Company Number: US-PFIZER INC-2012328101

PATIENT
  Age: 52 Year
  Sex: Female
  Weight: 91.61 kg

DRUGS (4)
  1. PHENYTOIN [Suspect]
     Indication: CONVULSION
     Dosage: 100 MG, 3X/DAY
     Dates: start: 20121219, end: 20121222
  2. DIVALPROEX SODIUM [Suspect]
     Indication: CONVULSION
     Dosage: 250 MG, 3X/DAY
     Dates: start: 2011
  3. NEURONTIN [Concomitant]
     Indication: BACK PAIN
     Dosage: 300 MG, 2X/DAY
  4. PHENOBARBITAL [Concomitant]
     Dosage: UNK

REACTIONS (2)
  - Drug ineffective [Unknown]
  - Pruritus [Unknown]
